FAERS Safety Report 20326148 (Version 2)
Quarter: 2022Q1

REPORT INFORMATION
  Report Type: Spontaneous
  Country: US (occurrence: US)
  Receive Date: 20220112
  Receipt Date: 20220225
  Transmission Date: 20220423
  Serious: No
  Sender: FDA-Public Use
  Company Number: US-NEUROCRINE BIOSCIENCES INC.-2022NBI00096

PATIENT

DRUGS (1)
  1. INGREZZA [Suspect]
     Active Substance: VALBENAZINE
     Indication: Product used for unknown indication
     Dosage: 40 MILLIGRAM
     Route: 048

REACTIONS (1)
  - Drug ineffective [Unknown]
